FAERS Safety Report 20389348 (Version 1)
Quarter: 2022Q1

REPORT INFORMATION
  Report Type: Spontaneous
  Country: DE (occurrence: DE)
  Receive Date: 20220128
  Receipt Date: 20220128
  Transmission Date: 20220423
  Serious: Yes (Death)
  Sender: FDA-Public Use
  Company Number: DE-BoehringerIngelheim-2022-BI-107852

PATIENT
  Age: 68 Year
  Sex: Male
  Weight: 120 kg

DRUGS (6)
  1. PREDNISOLONE [Suspect]
     Active Substance: PREDNISOLONE
     Indication: Myasthenia gravis
     Route: 065
  2. NINTEDANIB [Suspect]
     Active Substance: NINTEDANIB
     Indication: Non-small cell lung cancer
     Route: 065
     Dates: start: 20211201, end: 20211207
  3. NINTEDANIB [Suspect]
     Active Substance: NINTEDANIB
     Dates: start: 20211222, end: 20211230
  4. NINTEDANIB [Suspect]
     Active Substance: NINTEDANIB
     Dates: start: 20211020, end: 20211025
  5. DOCETAXEL [Suspect]
     Active Substance: DOCETAXEL
     Indication: Non-small cell lung cancer
     Route: 065
     Dates: start: 20211019, end: 20211108
  6. DOCETAXEL [Suspect]
     Active Substance: DOCETAXEL
     Dates: start: 20211108, end: 20220110

REACTIONS (3)
  - Immunosuppression [Fatal]
  - Diarrhoea [Not Recovered/Not Resolved]
  - Blood bilirubin increased [Recovered/Resolved]

NARRATIVE: CASE EVENT DATE: 20211001
